FAERS Safety Report 22314634 (Version 1)
Quarter: 2023Q2

REPORT INFORMATION
  Report Type: Spontaneous
  Country: CN (occurrence: CN)
  Receive Date: 20230512
  Receipt Date: 20230512
  Transmission Date: 20230721
  Serious: Yes (Hospitalization, Other)
  Sender: FDA-Public Use
  Company Number: CN-GLAXOSMITHKLINE-CN2023APC065037

PATIENT

DRUGS (11)
  1. LAMICTAL [Suspect]
     Active Substance: LAMOTRIGINE
     Indication: Bipolar disorder
     Dosage: 25 MG, QD
     Route: 048
     Dates: start: 20230415, end: 20230425
  2. LAMICTAL [Suspect]
     Active Substance: LAMOTRIGINE
     Indication: Symptomatic treatment
  3. LITHIUM CARBONATE [Concomitant]
     Active Substance: LITHIUM CARBONATE
     Indication: Bipolar disorder
     Dosage: 0.3 G, BID
     Route: 048
     Dates: start: 20230415, end: 20230504
  4. LITHIUM CARBONATE [Concomitant]
     Active Substance: LITHIUM CARBONATE
     Indication: Symptomatic treatment
     Dosage: 0.6 G, BID
     Route: 048
     Dates: start: 20230420
  5. LITHIUM CARBONATE [Concomitant]
     Active Substance: LITHIUM CARBONATE
     Indication: Insomnia
  6. ARIPIPRAZOLE [Concomitant]
     Active Substance: ARIPIPRAZOLE
     Indication: Bipolar disorder
     Dosage: 5 MG, BID (10MG)
     Route: 048
     Dates: start: 20230415, end: 20230504
  7. ARIPIPRAZOLE [Concomitant]
     Active Substance: ARIPIPRAZOLE
     Indication: Symptomatic treatment
     Dosage: 10 MG, BID
     Route: 048
     Dates: start: 20230420
  8. ARIPIPRAZOLE [Concomitant]
     Active Substance: ARIPIPRAZOLE
     Indication: Insomnia
  9. LORAZEPAM [Concomitant]
     Active Substance: LORAZEPAM
     Indication: Insomnia
     Dosage: 0.5 MG, QD (1 MG)
     Route: 048
     Dates: start: 20230420
  10. LORAZEPAM [Concomitant]
     Active Substance: LORAZEPAM
     Dosage: 1.5 MG, QD (1 MG)
     Route: 048
     Dates: start: 20230421
  11. LORAZEPAM [Concomitant]
     Active Substance: LORAZEPAM
     Dosage: 1 MG, QD (1 MG)
     Route: 048
     Dates: start: 20230427

REACTIONS (7)
  - Dermatitis allergic [Unknown]
  - Rash [Recovering/Resolving]
  - Pyrexia [Recovered/Resolved]
  - Vomiting [Unknown]
  - Nasopharyngitis [Recovered/Resolved]
  - Hypersomnia [Unknown]
  - Off label use [Unknown]

NARRATIVE: CASE EVENT DATE: 20230419
